FAERS Safety Report 18923927 (Version 1)
Quarter: 2021Q1

REPORT INFORMATION
  Report Type: Spontaneous
  Country: CN (occurrence: CN)
  Receive Date: 20210222
  Receipt Date: 20210222
  Transmission Date: 20210420
  Serious: Yes (Disabling)
  Sender: FDA-Public Use
  Company Number: CN-JNJFOC-20210235884

PATIENT
  Age: 55 Year
  Sex: Male
  Weight: 71 kg

DRUGS (2)
  1. DIOSMIN [Concomitant]
     Active Substance: DIOSMIN
  2. RIVAROXABAN [Suspect]
     Active Substance: RIVAROXABAN
     Indication: VENOUS THROMBOSIS
     Dosage: 10 MG, QD
     Route: 048
     Dates: start: 20210106, end: 20210111

REACTIONS (4)
  - Chest pain [Recovering/Resolving]
  - Product prescribing issue [Unknown]
  - Upper gastrointestinal haemorrhage [Recovering/Resolving]
  - Incorrect dose administered [Unknown]

NARRATIVE: CASE EVENT DATE: 20210106
